FAERS Safety Report 5857382-3 (Version None)
Quarter: 2008Q3

REPORT INFORMATION
  Report Type: 
  Country: None (occurrence: None)
  Receive Date: 20080825
  Receipt Date: 20080825
  Transmission Date: 20090109
  Serious: Yes (Death, Life-Threatening, Hospitalization)
  Sender: FDA-Public Use
  Company Number: None

PATIENT
  Age: 72 Year
  Sex: Female
  Weight: 79.3795 kg

DRUGS (1)
  1. DIGITEK, 125 MCG TABLETS, ACTAVIS TOTOWA [Suspect]
     Indication: CARDIAC DISORDER
     Dosage: 125 MCG 3 X WEEK BY MOUTH
     Route: 048
     Dates: start: 20040226, end: 20080328

REACTIONS (2)
  - PHARMACEUTICAL PRODUCT COMPLAINT [None]
  - THERAPEUTIC AGENT TOXICITY [None]
